FAERS Safety Report 7995029-0 (Version None)
Quarter: 2011Q4

REPORT INFORMATION
  Report Type: 
  Country: None (occurrence: None)
  Receive Date: 20111220
  Receipt Date: 20111219
  Transmission Date: 20120403
  Serious: Yes (Other)
  Sender: FDA-Public Use
  Company Number: US-PFIZER INC-2011236466

PATIENT
  Sex: Male
  Weight: 59 kg

DRUGS (5)
  1. VICODIN [Concomitant]
     Indication: BACK DISORDER
     Dosage: UNK
  2. CHANTIX [Suspect]
     Indication: SMOKING CESSATION THERAPY
     Dosage: 0.5 MG, 1X/DAY
     Route: 048
     Dates: start: 20100101
  3. CHANTIX [Suspect]
     Dosage: UNK
     Route: 048
     Dates: start: 20100101
  4. CHANTIX [Suspect]
     Dosage: UNK
     Route: 048
     Dates: start: 20110801, end: 20110101
  5. CHANTIX [Suspect]
     Dosage: 0.5 MG, 2X/DAY
     Route: 048
     Dates: start: 20110101, end: 20110101

REACTIONS (7)
  - UPPER LIMB FRACTURE [None]
  - LIVER DISORDER [None]
  - WEIGHT DECREASED [None]
  - LUNG DISORDER [None]
  - DEPRESSED MOOD [None]
  - DECREASED APPETITE [None]
  - AGITATION [None]
